FAERS Safety Report 17983890 (Version 2)
Quarter: 2020Q3

REPORT INFORMATION
  Report Type: Spontaneous
  Country: RU (occurrence: RU)
  Receive Date: 20200706
  Receipt Date: 20200714
  Transmission Date: 20201103
  Serious: Yes (Other)
  Sender: FDA-Public Use
  Company Number: RU-PFIZER INC-2020251643

PATIENT
  Age: 56 Year
  Sex: Male
  Weight: 133 kg

DRUGS (8)
  1. INSPRA [Suspect]
     Active Substance: EPLERENONE
     Indication: NEUROMUSCULAR BLOCKADE
  2. METOPROLOL. [Concomitant]
     Active Substance: METOPROLOL
     Dosage: 25 MG, 1X/DAY (IN THE MORNING)
  3. INSPRA [Suspect]
     Active Substance: EPLERENONE
     Indication: HYPERTONIA
     Dosage: 50 MG, 1X/DAY (IN THE MORNING)
     Dates: start: 2008, end: 202006
  4. EDARBI CLO [Concomitant]
     Dosage: UNK, 1X/DAY (AZILSARTAN KAMEDOXOMIL 40/ CHLORTALIDONE 12.5 MG IN THE MORNING)
  5. ZANIDIP [Concomitant]
     Active Substance: LERCANIDIPINE HYDROCHLORIDE
     Dosage: 20 MG, 1X/DAY (IN THE EVENING)
  6. VALSACOR [Concomitant]
     Active Substance: VALSARTAN
     Dosage: 160 MG
     Dates: start: 2008
  7. CARDIOMAGNYL [Concomitant]
     Active Substance: ASPIRIN\MAGNESIUM HYDROXIDE
     Dosage: UNK
     Dates: start: 2008
  8. CARDIOMAGNYL [Concomitant]
     Active Substance: ASPIRIN\MAGNESIUM HYDROXIDE
     Dosage: 75 MG IN THE EVENING
     Dates: start: 20200225

REACTIONS (19)
  - Psoriatic arthropathy [Unknown]
  - Central obesity [Unknown]
  - Erectile dysfunction [Unknown]
  - Male sexual dysfunction [Unknown]
  - Fatigue [Unknown]
  - Osteoarthritis [Unknown]
  - Myocardial ischaemia [Unknown]
  - Cardiac failure congestive [Unknown]
  - Bundle branch block right [Unknown]
  - Blood potassium increased [Unknown]
  - Pain [Unknown]
  - Left ventricular hypertrophy [Unknown]
  - Retinitis [Unknown]
  - Hypertension [Unknown]
  - Arthritis [Unknown]
  - Headache [Unknown]
  - Weight increased [Unknown]
  - Gynaecomastia [Unknown]
  - Psoriasis [Unknown]

NARRATIVE: CASE EVENT DATE: 2015
